FAERS Safety Report 8522953-2 (Version None)
Quarter: 2012Q3

REPORT INFORMATION
  Report Type: 
  Country: None (occurrence: None)
  Receive Date: 20120720
  Receipt Date: 20120710
  Transmission Date: 20120928
  Serious: No
  Sender: FDA-Public Use
  Company Number: US-BIOGENIDEC-2012BI020636

PATIENT
  Sex: Female

DRUGS (3)
  1. AVONEX [Suspect]
     Route: 030
     Dates: start: 20120624
  2. AVONEX [Suspect]
     Indication: MULTIPLE SCLEROSIS
     Route: 030
     Dates: start: 20080310, end: 20081210
  3. AVONEX [Suspect]
     Route: 030
     Dates: start: 20090331, end: 20120226

REACTIONS (10)
  - FALL [None]
  - VISUAL FIELD DEFECT [None]
  - MIGRAINE [None]
  - HEADACHE [None]
  - NECK PAIN [None]
  - MUSCULOSKELETAL STIFFNESS [None]
  - BALANCE DISORDER [None]
  - VISION BLURRED [None]
  - DIARRHOEA [None]
  - MUSCLE SPASMS [None]
